FAERS Safety Report 7956283-4 (Version None)
Quarter: 2011Q4

REPORT INFORMATION
  Report Type: 
  Country: None (occurrence: None)
  Receive Date: 20111205
  Receipt Date: 20111125
  Transmission Date: 20120403
  Serious: Yes (Hospitalization)
  Sender: FDA-Public Use
  Company Number: FR-JNJFOC-20111112308

PATIENT
  Sex: Female

DRUGS (2)
  1. RISPERDAL [Suspect]
     Route: 048
     Dates: start: 20110801, end: 20110829
  2. RISPERDAL [Suspect]
     Indication: ABNORMAL BEHAVIOUR
     Route: 048
     Dates: start: 20110701, end: 20110801

REACTIONS (4)
  - CONSTIPATION [None]
  - DRUG INEFFECTIVE [None]
  - SOMNOLENCE [None]
  - GENERAL PHYSICAL HEALTH DETERIORATION [None]
